FAERS Safety Report 4592063-8 (Version None)
Quarter: 2005Q1

REPORT INFORMATION
  Report Type: 
  Country: None (occurrence: None)
  Receive Date: 20050125
  Receipt Date: 20040319
  Transmission Date: 20050727
  Serious: No
  Sender: FDA-Public Use
  Company Number: USA040362522

PATIENT
  Age: 73 Year
  Sex: Female
  Weight: 63 kg

DRUGS (1)
  1. FORTEO [Suspect]
     Indication: OSTEOPOROSIS
     Dosage: 20 UG/1 DAY
     Dates: start: 20040312

REACTIONS (5)
  - BACK PAIN [None]
  - INJECTION SITE ERYTHEMA [None]
  - NAUSEA [None]
  - PARAESTHESIA [None]
  - SWELLING FACE [None]
